FAERS Safety Report 15689887 (Version 1)
Quarter: 2018Q4

REPORT INFORMATION
  Report Type: Spontaneous
  Country: US (occurrence: US)
  Receive Date: 20181205
  Receipt Date: 20181205
  Transmission Date: 20190205
  Serious: Yes (Death)
  Sender: FDA-Public Use
  Company Number: None

PATIENT
  Age: 71 Year
  Sex: Female

DRUGS (22)
  1. BUMETANIDE. [Concomitant]
     Active Substance: BUMETANIDE
  2. DEXMETHLYPH [Concomitant]
  3. ESOMEPRAZOLE. [Concomitant]
     Active Substance: ESOMEPRAZOLE MAGNESIUM
  4. FUROSEMIDE. [Concomitant]
     Active Substance: FUROSEMIDE
  5. NITROGLYCERIN. [Concomitant]
     Active Substance: NITROGLYCERIN
  6. ENTRESTO [Concomitant]
     Active Substance: SACUBITRIL\VALSARTAN
  7. FLUDROCORT [Concomitant]
  8. A-HYDROCORT [Concomitant]
     Active Substance: HYDROCORTISONE SODIUM SUCCINATE
  9. LASIX [Concomitant]
     Active Substance: FUROSEMIDE
  10. PLAVIX [Concomitant]
     Active Substance: CLOPIDOGREL BISULFATE
  11. SERTRALINE / SYNTHROID [Concomitant]
  12. CELLCEPT [Suspect]
     Active Substance: MYCOPHENOLATE MOFETIL\MYCOPHENOLATE MOFETIL HYDROCHLORIDE
     Indication: TRANSPLANT
     Route: 048
     Dates: start: 20110830
  13. CORTEF [Concomitant]
     Active Substance: HYDROCORTISONE
  14. PLAQUENIL [Concomitant]
     Active Substance: HYDROXYCHLOROQUINE SULFATE
  15. DIGOX [Concomitant]
     Active Substance: DIGOXIN
  16. METOPROLOL SUCC [Concomitant]
     Active Substance: METOPROLOL SUCCINATE
  17. OMEPRAZOLE. [Concomitant]
     Active Substance: OMEPRAZOLE
  18. RANEXA [Concomitant]
     Active Substance: RANOLAZINE
  19. ASPIRIN. [Concomitant]
     Active Substance: ASPIRIN
  20. ISOSORBIDE MONO [Concomitant]
  21. SPIRONOLACTONE. [Concomitant]
     Active Substance: SPIRONOLACTONE
  22. METOLAZONE. [Concomitant]
     Active Substance: METOLAZONE

REACTIONS (1)
  - Death [None]

NARRATIVE: CASE EVENT DATE: 20181117
